FAERS Safety Report 7401682-2 (Version None)
Quarter: 2011Q2

REPORT INFORMATION
  Report Type: 
  Country: None (occurrence: None)
  Receive Date: 20110408
  Receipt Date: 20110331
  Transmission Date: 20111010
  Serious: No
  Sender: FDA-Public Use
  Company Number: US-BIOGENIDEC-2011BI012239

PATIENT
  Age: 57 Year
  Sex: Female

DRUGS (2)
  1. AVONEX [Suspect]
     Indication: MULTIPLE SCLEROSIS
     Route: 030
     Dates: start: 20070309
  2. AVONEX [Suspect]
     Route: 030
     Dates: start: 20050430, end: 20050930

REACTIONS (9)
  - ABDOMINAL PAIN UPPER [None]
  - FEAR [None]
  - TENSION [None]
  - CONFUSIONAL STATE [None]
  - NECK PAIN [None]
  - ROAD TRAFFIC ACCIDENT [None]
  - HEAD INJURY [None]
  - NECK INJURY [None]
  - NERVOUSNESS [None]
